FAERS Safety Report 14439578 (Version 1)
Quarter: 2018Q1

REPORT INFORMATION
  Report Type: Spontaneous
  Country: US (occurrence: US)
  Receive Date: 20180125
  Receipt Date: 20180125
  Transmission Date: 20180509
  Serious: No
  Sender: FDA-Public Use
  Company Number: US-UNITED THERAPEUTICS-UNT-2017-014432

PATIENT
  Age: 13 Year
  Sex: Female

DRUGS (5)
  1. AMBRISENTAN [Suspect]
     Active Substance: AMBRISENTAN
     Indication: PULMONARY HYPERTENSION
     Dosage: 10 MG, QD
     Route: 065
     Dates: start: 20120802
  2. REMODULIN [Suspect]
     Active Substance: TREPROSTINIL
     Indication: PULMONARY ARTERIAL HYPERTENSION
     Dosage: 0.106 ?G/KG, CONTINUING
     Route: 041
     Dates: start: 20151216
  3. REMODULIN [Suspect]
     Active Substance: TREPROSTINIL
     Dosage: 0.104 ?G/KG, CONTINUING
     Route: 041
  4. ADCIRCA [Concomitant]
     Active Substance: TADALAFIL
     Indication: PRODUCT USED FOR UNKNOWN INDICATION
     Dosage: UNK
     Route: 065
  5. REMODULIN [Suspect]
     Active Substance: TREPROSTINIL
     Dosage: 0.109 ?G/KG, CONTINUING
     Route: 041

REACTIONS (4)
  - Fatigue [Not Recovered/Not Resolved]
  - Condition aggravated [Unknown]
  - Dizziness [Unknown]
  - Exercise tolerance decreased [Not Recovered/Not Resolved]

NARRATIVE: CASE EVENT DATE: 20170929
